FAERS Safety Report 11373755 (Version 1)
Quarter: 2015Q3

REPORT INFORMATION
  Report Type: Spontaneous
  Country: US (occurrence: None)
  Receive Date: 20150811
  Receipt Date: 20150811
  Transmission Date: 20151125
  Serious: Yes (Other)
  Sender: FDA-Public Use
  Company Number: ABR_02320_2015

PATIENT
  Age: 71 Year
  Sex: Female

DRUGS (2)
  1. EDARBYCLOR [Suspect]
     Active Substance: AZILSARTAN KAMEDOXOMIL\CHLORTHALIDONE
     Indication: HYPERTENSION
     Dosage: 1 DF QD, 40.12/5MG
     Route: 048
     Dates: start: 201507, end: 201507
  2. ATENOLOL. [Concomitant]
     Active Substance: ATENOLOL

REACTIONS (10)
  - Myalgia [None]
  - Pain in extremity [None]
  - Hypertension [None]
  - Wrong technique in product usage process [None]
  - Treatment noncompliance [None]
  - Condition aggravated [None]
  - Arthralgia [None]
  - Vomiting [None]
  - Cystitis [None]
  - Cough [None]

NARRATIVE: CASE EVENT DATE: 201507
